FAERS Safety Report 6433851-2 (Version None)
Quarter: 2009Q4

REPORT INFORMATION
  Report Type: 
  Country: None (occurrence: None)
  Receive Date: 20091106
  Receipt Date: 20091106
  Transmission Date: 20100525
  Serious: Yes (Hospitalization)
  Sender: FDA-Public Use
  Company Number: None

PATIENT
  Age: 52 Year
  Sex: Male
  Weight: 95 kg

DRUGS (1)
  1. SPIRONOLACTONE [Suspect]
     Indication: LIVER DISORDER
     Dosage: 50 MG EVERY DAY PO
     Dates: end: 20090429

REACTIONS (1)
  - HYPERKALAEMIA [None]
